FAERS Safety Report 8005795-6 (Version None)
Quarter: 2011Q4

REPORT INFORMATION
  Report Type: 
  Country: None (occurrence: None)
  Receive Date: 20111223
  Receipt Date: 20111216
  Transmission Date: 20120403
  Serious: Yes (Hospitalization)
  Sender: FDA-Public Use
  Company Number: DE-ROCHE-1022983

PATIENT
  Sex: Male
  Weight: 79 kg

DRUGS (3)
  1. CISPLATIN [Concomitant]
     Indication: LUNG ADENOCARCINOMA
     Route: 042
     Dates: start: 20111207
  2. AVASTIN [Suspect]
     Indication: LUNG ADENOCARCINOMA
     Route: 042
     Dates: start: 20111207
  3. PEMETREXED [Concomitant]
     Indication: LUNG ADENOCARCINOMA
     Route: 042
     Dates: start: 20111207

REACTIONS (2)
  - PROTEINURIA [None]
  - GENERAL PHYSICAL HEALTH DETERIORATION [None]
